FAERS Safety Report 4365987-4 (Version None)
Quarter: 2004Q2

REPORT INFORMATION
  Report Type: 
  Country: None (occurrence: None)
  Receive Date: 20040520
  Receipt Date: 20040504
  Transmission Date: 20050107
  Serious: Yes (Hospitalization)
  Sender: FDA-Public Use
  Company Number: ATO-04-0457

PATIENT
  Age: 65 Year
  Sex: 0

DRUGS (7)
  1. TRISENOX [Suspect]
     Indication: MULTIPLE MYELOMA
     Dosage: (1 CYCLE), IVI
     Route: 042
  2. LACTULOSE [Concomitant]
  3. CLARITHROMYCIN [Concomitant]
  4. FENTANYL [Concomitant]
  5. FUROSEMIDE [Concomitant]
  6. ACETAMINOPHEN [Concomitant]
  7. MORFIN [Concomitant]

REACTIONS (1)
  - CARDIAC FAILURE [None]
